FAERS Safety Report 13469582 (Version 2)
Quarter: 2017Q4

REPORT INFORMATION
  Report Type: Report from Study
  Country: None (occurrence: US)
  Receive Date: 20170422
  Receipt Date: 20171113
  Transmission Date: 20180320
  Serious: Yes (Hospitalization, Other)
  Sender: FDA-Public Use
  Company Number: US-ABBVIE-17K-163-1844138-00

PATIENT
  Age: 62 Year
  Sex: Female

DRUGS (5)
  1. HUMIRA [Suspect]
     Active Substance: ADALIMUMAB
     Indication: PSORIASIS
     Route: 058
     Dates: start: 2015, end: 201608
  2. HUMIRA [Suspect]
     Active Substance: ADALIMUMAB
     Route: 058
     Dates: start: 20171106
  3. HUMIRA [Suspect]
     Active Substance: ADALIMUMAB
     Route: 058
     Dates: start: 20161205, end: 2017
  4. HUMIRA [Suspect]
     Active Substance: ADALIMUMAB
     Route: 058
     Dates: start: 20171023, end: 20171023
  5. ASPIRIN. [Suspect]
     Active Substance: ASPIRIN
     Indication: CARDIAC FLUTTER
     Route: 065
     Dates: start: 201701

REACTIONS (17)
  - Frustration tolerance decreased [Unknown]
  - Psoriasis [Recovering/Resolving]
  - Electrolyte imbalance [Unknown]
  - Cardiac flutter [Unknown]
  - Anger [Unknown]
  - Skin fissures [Unknown]
  - Injection site pain [Unknown]
  - Pollakiuria [Unknown]
  - Myocardial infarction [Unknown]
  - Treatment failure [Unknown]
  - Skin haemorrhage [Unknown]
  - Atrial fibrillation [Unknown]
  - Abdominal discomfort [Unknown]
  - Pain of skin [Unknown]
  - Sneezing [Unknown]
  - Psoriasis [Recovering/Resolving]
  - Fatigue [Unknown]

NARRATIVE: CASE EVENT DATE: 2016
